FAERS Safety Report 20756906 (Version 3)
Quarter: 2022Q4

REPORT INFORMATION
  Report Type: Spontaneous
  Country: IN (occurrence: IN)
  Receive Date: 20220427
  Receipt Date: 20221130
  Transmission Date: 20230113
  Serious: Yes (Other)
  Sender: FDA-Public Use
  Company Number: IN-PFIZER INC-202200597563

PATIENT
  Age: 47 Year
  Sex: Female

DRUGS (4)
  1. PALBOCICLIB [Suspect]
     Active Substance: PALBOCICLIB
     Indication: Breast cancer metastatic
     Dosage: ONCE DAILY FOR 21/30
     Route: 048
     Dates: start: 20210709
  2. PALBOCICLIB [Suspect]
     Active Substance: PALBOCICLIB
     Dosage: 125 MG, CYCLIC, 1 DAILY FOR 21 DAYS IN A MONTH X 6 MONTHS
     Route: 048
  3. FEMARA [Concomitant]
     Active Substance: LETROZOLE
     Dosage: UNK, DAILY X 6 MONTHS
  4. CALSMIN [NITRAZEPAM] [Concomitant]
     Dosage: UNK, DAILY X 6 MONTHS

REACTIONS (2)
  - Jugular vein thrombosis [Unknown]
  - Off label use [Unknown]
